FAERS Safety Report 15578987 (Version 2)
Quarter: 2018Q4

REPORT INFORMATION
  Report Type: Spontaneous
  Country: NL (occurrence: NL)
  Receive Date: 20181102
  Receipt Date: 20181108
  Transmission Date: 20190205
  Serious: Yes (Other)
  Sender: FDA-Public Use
  Company Number: NL-PFIZER INC-2018441742

PATIENT
  Age: 4 Month
  Sex: Female

DRUGS (1)
  1. CLINDAMYCIN PHOSPHATE. [Suspect]
     Active Substance: CLINDAMYCIN PHOSPHATE
     Dosage: UNK
     Route: 042

REACTIONS (3)
  - Drug resistance [Recovering/Resolving]
  - Septic shock [Recovering/Resolving]
  - Condition aggravated [Recovering/Resolving]
